FAERS Safety Report 7597587-7 (Version None)
Quarter: 2011Q3

REPORT INFORMATION
  Report Type: 
  Country: None (occurrence: None)
  Receive Date: 20110708
  Receipt Date: 20110630
  Transmission Date: 20111222
  Serious: Yes (Hospitalization)
  Sender: FDA-Public Use
  Company Number: FR-JNJFOC-20110700801

PATIENT
  Sex: Female

DRUGS (8)
  1. DOXORUBICIN HCL [Suspect]
     Route: 042
     Dates: start: 20110104, end: 20110104
  2. VALACYCLOVIR HYDROCHLORIDE [Concomitant]
     Route: 065
  3. DEXAMETHASONE [Concomitant]
     Route: 042
     Dates: start: 20110104
  4. VITAMINS NOS [Concomitant]
     Route: 065
  5. DOXORUBICIN HCL [Suspect]
     Indication: PRODUCT USED FOR UNKNOWN INDICATION
     Route: 042
     Dates: start: 20110128, end: 20110128
  6. VELCADE [Concomitant]
     Route: 042
     Dates: start: 20110104
  7. DEXAMETHASONE [Concomitant]
     Route: 042
     Dates: start: 20110104
  8. PAROXETINE HYDROCHLORIDE [Concomitant]
     Route: 065

REACTIONS (4)
  - PYREXIA [None]
  - RASH ERYTHEMATOUS [None]
  - STOMATITIS [None]
  - SKIN HYPERPIGMENTATION [None]
